FAERS Safety Report 5207302-X (Version None)
Quarter: 2007Q1

REPORT INFORMATION
  Report Type: 
  Country: None (occurrence: None)
  Receive Date: 20070112
  Receipt Date: 20061222
  Transmission Date: 20070707
  Serious: Yes (Death, Hospitalization)
  Sender: FDA-Public Use
  Company Number: CA-BRISTOL-MYERS SQUIBB COMPANY-13618970

PATIENT
  Age: 48 Year
  Sex: Male
  Weight: 64 kg

DRUGS (2)
  1. CETUXIMAB [Suspect]
     Indication: COLORECTAL CANCER METASTATIC
     Route: 042
     Dates: start: 20051104, end: 20060117
  2. METOPROLOL SUCCINATE [Concomitant]
     Route: 048
     Dates: start: 20040201

REACTIONS (3)
  - DYSPNOEA [None]
  - MALIGNANT NEOPLASM PROGRESSION [None]
  - RESPIRATORY FAILURE [None]
